FAERS Safety Report 18957026 (Version 1)
Quarter: 2021Q1

REPORT INFORMATION
  Report Type: Report from Study
  Country: CA (occurrence: CA)
  Receive Date: 20210302
  Receipt Date: 20210302
  Transmission Date: 20210420
  Serious: Yes (Hospitalization, Other)
  Sender: FDA-Public Use
  Company Number: CA-SUN PHARMACEUTICAL INDUSTRIES LTD-2021R1-283269

PATIENT
  Age: 87 Year
  Sex: Male

DRUGS (1)
  1. GALANTAMINE. [Suspect]
     Active Substance: GALANTAMINE
     Indication: PRODUCT USED FOR UNKNOWN INDICATION
     Dosage: UNK
     Route: 065

REACTIONS (3)
  - Aphasia [Recovered/Resolved]
  - Muscular weakness [Recovered/Resolved]
  - Seizure [Recovered/Resolved]
